FAERS Safety Report 12381490 (Version 2)
Quarter: 2016Q2

REPORT INFORMATION
  Report Type: Report from Study
  Country: PR (occurrence: PR)
  Receive Date: 20160518
  Receipt Date: 20160523
  Transmission Date: 20160815
  Serious: Yes (Hospitalization)
  Sender: FDA-Public Use
  Company Number: PR-JNJFOC-20160204592

PATIENT
  Age: 3 Day
  Sex: Female
  Weight: 2.88 kg

DRUGS (8)
  1. PREZISTA [Suspect]
     Active Substance: DARUNAVIR ETHANOLATE
     Indication: ANTIRETROVIRAL THERAPY
     Dosage: MOTHER^S DOSING
     Route: 064
     Dates: start: 20150215, end: 20150910
  2. PRENATAL PLUS [Concomitant]
     Active Substance: .ALPHA.-TOCOPHEROL ACETATE, DL-\.BETA.-CAROTENE\ASCORBIC ACID\CALCIUM CARBONATE\CHOLECALCIFEROL\CUPRIC OXIDE\CYANOCOBALAMIN\FERROUS FUMARATE\FOLIC ACID\NIACINAMIDE\PYRIDOXINE HYDROCHLORIDE\RIBOFLAVIN\THIAMINE MONONITRATE\VITAMIN A ACETATE\ZINC OXIDE
     Indication: PREGNANCY
     Dosage: MOTHER^S DOSING
     Route: 064
     Dates: start: 20150722
  3. TRI VI SOL [Concomitant]
     Indication: VITAMIN SUPPLEMENTATION
     Route: 048
     Dates: start: 20160115
  4. PREZCOBIX [Suspect]
     Active Substance: COBICISTAT\DARUNAVIR ETHANOLATE
     Indication: HIV INFECTION
     Dosage: MOTHER?S DOSING
     Route: 064
     Dates: start: 20150908
  5. TRUVADA [Suspect]
     Active Substance: EMTRICITABINE\TENOFOVIR DISOPROXIL FUMARATE
     Indication: ANTIRETROVIRAL THERAPY
     Dosage: MOTHER^S DOSING
     Route: 064
     Dates: start: 20150215
  6. NORVIR [Suspect]
     Active Substance: RITONAVIR
     Indication: ANTIRETROVIRAL THERAPY
     Dosage: MOTHER^S DOSING
     Route: 064
     Dates: start: 20150215, end: 20150910
  7. ERYTHROMYCIN. [Concomitant]
     Active Substance: ERYTHROMYCIN
     Indication: PROPHYLAXIS
     Route: 047
     Dates: start: 20160115, end: 20160115
  8. FOLIC ACID. [Concomitant]
     Active Substance: FOLIC ACID
     Indication: PREGNANCY
     Dosage: MOTHER^S DOSING
     Route: 064
     Dates: start: 20150722

REACTIONS (2)
  - Foetal exposure during pregnancy [Recovered/Resolved]
  - Omphalitis [Recovered/Resolved]

NARRATIVE: CASE EVENT DATE: 20160118
